FAERS Safety Report 9467524 (Version 1)
Quarter: 2013Q3

REPORT INFORMATION
  Report Type: Spontaneous
  Country: US (occurrence: None)
  Receive Date: 20130819
  Receipt Date: 20130819
  Transmission Date: 20140515
  Serious: Yes (Life-Threatening, Other)
  Sender: FDA-Public Use
  Company Number: None

PATIENT
  Age: 16 Year
  Sex: Male
  Weight: 84.37 kg

DRUGS (1)
  1. CONCERTA [Suspect]
     Indication: ATTENTION DEFICIT/HYPERACTIVITY DISORDER
     Dosage: ONE QD ORAL
     Route: 048
     Dates: start: 20130816, end: 20130817

REACTIONS (7)
  - Product substitution issue [None]
  - Nausea [None]
  - Muscle spasms [None]
  - Abdominal pain [None]
  - Flatulence [None]
  - Feeling abnormal [None]
  - Drug effect decreased [None]
